FAERS Safety Report 8605972 (Version 2)
Quarter: 2012Q4

REPORT INFORMATION
  Report Type: 
  Country: US (occurrence: US)
  Receive Date: 20120608
  Receipt Date: 20120905
  Transmission Date: 20130627
  Serious: Yes (Hospitalization, Other)
  Sender: FDA-Public Use
  Company Number: US-PFIZER INC-2012136974

PATIENT
  Age: 84 Year
  Sex: Male

DRUGS (13)
  1. LYRICA [Suspect]
     Indication: NEUROPATHY PERIPHERAL
     Dosage: 75 (units not provided) 2x/day
     Route: 048
  2. LYRICA [Suspect]
     Indication: SYNCOPE
     Dosage: 150 (units not provided), 2x/day (BID)
     Route: 048
  3. LYRICA [Suspect]
     Dosage: 75 t.i.d
  4. OXYCODONE HYDROCHLORIDE [Suspect]
     Dosage: UNK
  5. WELLBUTRIN [Concomitant]
     Indication: DEPRESSION
     Dosage: UNK
     Dates: start: 2011
  6. FLOMAX [Concomitant]
     Indication: BENIGN PROSTATIC HYPERPLASIA
     Dosage: UNK
     Dates: start: 2011
  7. PROTONIX [Concomitant]
     Indication: GASTROOESOPHAGEAL REFLUX DISEASE
     Dosage: 40 mg, daily
     Dates: start: 2011
  8. PROTONIX [Concomitant]
     Indication: ULCER
  9. WELLBUTRIN XL [Concomitant]
     Dosage: 150 mg, UNK
  10. IRON [Concomitant]
     Dosage: Iron 325 plus ascorbic acid 500,  2x/day (325)
  11. ASCORBIC ACID [Concomitant]
     Dosage: UNK 2x/day (500)
  12. MAGNESIUM OXIDE [Concomitant]
     Dosage: 400 mg, UNK
  13. SENOKOT [Concomitant]
     Dosage: UNK (p.r.n.)

REACTIONS (15)
  - Syncope [Recovered/Resolved]
  - Orthostatic hypotension [Recovered/Resolved]
  - Oedema peripheral [Recovered/Resolved]
  - Erosive oesophagitis [Unknown]
  - Gastrointestinal haemorrhage [Unknown]
  - Iron deficiency anaemia [Unknown]
  - Spinal column stenosis [Unknown]
  - Depression [Unknown]
  - Constipation [Unknown]
  - Asthenia [Unknown]
  - Tremor [Unknown]
  - Screaming [Unknown]
  - Feeling abnormal [Unknown]
  - Somnolence [Unknown]
  - Sinus tachycardia [Unknown]
